FAERS Safety Report 4408316-X (Version None)
Quarter: 2004Q3

REPORT INFORMATION
  Report Type: 
  Country: None (occurrence: None)
  Receive Date: 20040726
  Receipt Date: 20040726
  Transmission Date: 20050211
  Serious: Yes (Life-Threatening, Hospitalization, Disabling)
  Sender: FDA-Public Use
  Company Number: None

PATIENT
  Age: 83 Year
  Sex: Female

DRUGS (3)
  1. AVELOX [Suspect]
     Indication: PNEUMONIA
     Dosage: 400 MG QD IV
     Route: 042
     Dates: start: 20040301, end: 20040301
  2. ROCHEPHIN IV [Concomitant]
  3. NTP [Concomitant]

REACTIONS (8)
  - ANOXIC ENCEPHALOPATHY [None]
  - CARDIAC ARREST [None]
  - CYANOSIS [None]
  - EXTRASYSTOLES [None]
  - PULSE ABSENT [None]
  - TORSADE DE POINTES [None]
  - VENTRICULAR FIBRILLATION [None]
  - VENTRICULAR TACHYCARDIA [None]
